FAERS Safety Report 18864651 (Version 2)
Quarter: 2021Q1

REPORT INFORMATION
  Report Type: Spontaneous
  Country: SE (occurrence: SE)
  Receive Date: 20210208
  Receipt Date: 20210219
  Transmission Date: 20210420
  Serious: Yes (Death, Other)
  Sender: FDA-Public Use
  Company Number: SE-B.I. PHARMACEUTICALS,INC./RIDGEFIELD-2021-BI-081678

PATIENT
  Age: 86 Year
  Sex: Male
  Weight: 93 kg

DRUGS (11)
  1. MORFIN MEDA [Concomitant]
     Active Substance: MORPHINE SULFATE
     Indication: PRODUCT USED FOR UNKNOWN INDICATION
  2. HYDROKORTISON [Concomitant]
     Indication: PRODUCT USED FOR UNKNOWN INDICATION
     Dosage: 1 FREQUENCY: 1, FREQUENCY UNIT: 808
  3. FLUOXETIN MYLAN [Concomitant]
     Indication: PRODUCT USED FOR UNKNOWN INDICATION
  4. PEVISONE [ECONAZOLE NITRATE] [Concomitant]
     Indication: PRODUCT USED FOR UNKNOWN INDICATION
     Dosage: 1 MG/G + 10 MG/G KRAM FREQUENCY: 1, FREQUENCY UNIT: 808
  5. EZETIMIB KRKA [Concomitant]
     Indication: PRODUCT USED FOR UNKNOWN INDICATION
     Dates: start: 202010
  6. METOPROLOL SANDOZ [METOPROLOL TARTRATE] [Concomitant]
     Active Substance: METOPROLOL TARTRATE
     Indication: PRODUCT USED FOR UNKNOWN INDICATION
  7. OMEPRAZOL TEVA [OMEPRAZOLE] [Concomitant]
     Indication: PRODUCT USED FOR UNKNOWN INDICATION
  8. ALVEDON [Concomitant]
     Active Substance: ACETAMINOPHEN
     Indication: PRODUCT USED FOR UNKNOWN INDICATION
  9. ATORVASTATIN ACTAVIS [ATORVASTATIN CALCIUM] [Concomitant]
     Indication: PRODUCT USED FOR UNKNOWN INDICATION
  10. PRAXBIND [Suspect]
     Active Substance: IDARUCIZUMAB
     Indication: THROMBOLYSIS
     Dosage: 5 G FREQUENCY: 1, FREQUENCY UNIT: 809
     Route: 042
     Dates: start: 20201020, end: 20201020
  11. MOVICOL [Concomitant]
     Active Substance: POLYETHYLENE GLYCOL 3350\POTASSIUM CHLORIDE\SODIUM BICARBONATE\SODIUM CHLORIDE
     Indication: PRODUCT USED FOR UNKNOWN INDICATION
     Dosage: 1 FREQUENCY: 1, FREQUENCY UNIT: 808

REACTIONS (1)
  - Ischaemic stroke [Fatal]

NARRATIVE: CASE EVENT DATE: 20201103
